FAERS Safety Report 18655055 (Version 1)
Quarter: 2020Q4

REPORT INFORMATION
  Report Type: Spontaneous
  Country: US (occurrence: US)
  Receive Date: 20201223
  Receipt Date: 20201223
  Transmission Date: 20210114
  Serious: Yes (Hospitalization)
  Sender: FDA-Public Use
  Company Number: None

PATIENT
  Age: 53 Year
  Sex: Female

DRUGS (2)
  1. NONE LISTED [Concomitant]
  2. AFINITOR [Suspect]
     Active Substance: EVEROLIMUS
     Indication: NEOPLASM MALIGNANT
     Route: 048
     Dates: start: 20190917

REACTIONS (3)
  - Therapy interrupted [None]
  - Gastroenteritis viral [None]
  - Diarrhoea [None]

NARRATIVE: CASE EVENT DATE: 20201204
